FAERS Safety Report 25492088 (Version 1)
Quarter: 2025Q2

REPORT INFORMATION
  Report Type: Spontaneous
  Country: RU (occurrence: RU)
  Receive Date: 20250630
  Receipt Date: 20250630
  Transmission Date: 20250717
  Serious: Yes (Death, Other)
  Sender: CATALYST PHARMA
  Company Number: RU-CATALYSTPHARMACEUTICALPARTNERS-RU-CATA-25-00925

PATIENT
  Sex: Female

DRUGS (1)
  1. FYCOMPA [Suspect]
     Active Substance: PERAMPANEL
     Indication: Seizure
     Route: 048

REACTIONS (2)
  - Completed suicide [Fatal]
  - Suicidal ideation [Unknown]
